FAERS Safety Report 17696967 (Version 4)
Quarter: 2020Q3

REPORT INFORMATION
  Report Type: Other
  Country: FR (occurrence: FR)
  Receive Date: 20200423
  Receipt Date: 20200904
  Transmission Date: 20201102
  Serious: Yes (Hospitalization)
  Sender: FDA-Public Use
  Company Number: FR-ROCHE-2586298

PATIENT
  Age: 69 Year
  Sex: Male
  Weight: 63.2 kg

DRUGS (16)
  1. ATEZOLIZUMAB. [Suspect]
     Active Substance: ATEZOLIZUMAB
     Route: 042
     Dates: start: 20191219, end: 20191219
  2. ATEZOLIZUMAB. [Suspect]
     Active Substance: ATEZOLIZUMAB
     Route: 042
     Dates: start: 20200130, end: 20200130
  3. AMLODIPINE [Concomitant]
     Active Substance: AMLODIPINE BESYLATE
     Indication: HYPERTENSION
     Dates: start: 1990
  4. ATEZOLIZUMAB. [Suspect]
     Active Substance: ATEZOLIZUMAB
     Indication: NON-SMALL CELL LUNG CANCER
     Route: 041
     Dates: start: 20191017, end: 20191017
  5. BISOPROLOL [Concomitant]
     Active Substance: BISOPROLOL
     Indication: ATRIAL FIBRILLATION
     Dates: start: 1990
  6. DOLIPRANE [Concomitant]
     Active Substance: ACETAMINOPHEN
     Indication: PAIN IN EXTREMITY
     Dates: start: 20191205, end: 20191211
  7. ATEZOLIZUMAB. [Suspect]
     Active Substance: ATEZOLIZUMAB
     Indication: TRANSITIONAL CELL CARCINOMA
     Route: 042
     Dates: start: 20191107, end: 20191107
  8. MOVICOL [Concomitant]
     Active Substance: POLYETHYLENE GLYCOL 3350\POTASSIUM CHLORIDE\SODIUM BICARBONATE\SODIUM CHLORIDE
     Indication: FAECALOMA
     Dates: start: 20191205, end: 20191211
  9. FLECAINE [Concomitant]
     Active Substance: FLECAINIDE
     Indication: ATRIAL FIBRILLATION
     Dates: start: 199012
  10. KARDEGIC [Concomitant]
     Active Substance: ASPIRIN DL-LYSINE
     Dates: start: 2006
  11. PARACETAMOL [Concomitant]
     Active Substance: ACETAMINOPHEN
     Dates: start: 20191205, end: 20191211
  12. ATEZOLIZUMAB. [Suspect]
     Active Substance: ATEZOLIZUMAB
     Route: 042
     Dates: start: 20191128, end: 20191128
  13. EZETIMIBE. [Concomitant]
     Active Substance: EZETIMIBE
     Indication: HYPERCHOLESTEROLAEMIA
     Dates: start: 1990
  14. SIMVASTATINE [Concomitant]
     Active Substance: SIMVASTATIN
     Indication: HYPERCHOLESTEROLAEMIA
     Dates: start: 1990
  15. ATEZOLIZUMAB. [Suspect]
     Active Substance: ATEZOLIZUMAB
     Route: 042
     Dates: start: 20200109, end: 20200109
  16. VALSARTAN. [Concomitant]
     Active Substance: VALSARTAN
     Indication: HYPERTENSION
     Dates: start: 199012

REACTIONS (1)
  - Peripheral sensorimotor neuropathy [Recovered/Resolved]

NARRATIVE: CASE EVENT DATE: 20200210
